FAERS Safety Report 10065286 (Version 1)
Quarter: 2014Q2

REPORT INFORMATION
  Report Type: Spontaneous
  Country: US (occurrence: None)
  Receive Date: 20140404
  Receipt Date: 20140404
  Transmission Date: 20141212
  Serious: Yes (Life-Threatening, Other)
  Sender: FDA-Public Use
  Company Number: 2014EXPUS00178

PATIENT
  Sex: Female

DRUGS (2)
  1. EXPAREL [Suspect]
     Indication: POSTOPERATIVE ANALGESIA
     Dosage: PERIARTERIAL INJECTION
  2. MARCAINE [Suspect]
     Indication: PRODUCT USED FOR UNKNOWN INDICATION
     Dosage: PERIARTERIAL

REACTIONS (1)
  - Hypotension [None]
